FAERS Safety Report 16022380 (Version 2)
Quarter: 2019Q1

REPORT INFORMATION
  Report Type: Spontaneous
  Country: US (occurrence: US)
  Receive Date: 20190301
  Receipt Date: 20190307
  Transmission Date: 20190418
  Serious: Yes (Life-Threatening, Hospitalization, Other)
  Sender: FDA-Public Use
  Company Number: PHHY2019US043626

PATIENT
  Age: 5 Year
  Sex: Female

DRUGS (2)
  1. ONDANSETRON [Suspect]
     Active Substance: ONDANSETRON
     Dosage: 4 MG, UNK (TOOK 3 OVER THE COURSE OF 2 DAYS)
     Route: 048
  2. ONDANSETRON [Suspect]
     Active Substance: ONDANSETRON
     Indication: PRODUCT USED FOR UNKNOWN INDICATION
     Dosage: 4 MG, UNK (TOOK 3 OVER THE COURSE OF 2 DAYS.)
     Route: 030

REACTIONS (6)
  - Ventricular tachycardia [Recovered/Resolved]
  - Long QT syndrome [Recovered/Resolved]
  - Ventricular fibrillation [Recovered/Resolved]
  - Electrocardiogram QRS complex [Recovered/Resolved]
  - Ventricular extrasystoles [Recovered/Resolved]
  - Torsade de pointes [Recovered/Resolved]
